FAERS Safety Report 21440233 (Version 1)
Quarter: 2022Q4

REPORT INFORMATION
  Report Type: Spontaneous
  Country: US (occurrence: US)
  Receive Date: 20221011
  Receipt Date: 20221011
  Transmission Date: 20230113
  Serious: No
  Sender: FDA-Public Use
  Company Number: US-AMNEAL PHARMACEUTICALS-2021-AMRX-05386

PATIENT
  Age: 19 Year
  Sex: Male

DRUGS (4)
  1. LIORESAL [Suspect]
     Active Substance: BACLOFEN
     Indication: Muscle spasticity
     Dosage: 350 ?G, \DAY
     Route: 037
     Dates: end: 20210712
  2. LIORESAL [Suspect]
     Active Substance: BACLOFEN
     Indication: Muscle spasticity
     Dosage: 350 ?G, \DAY
     Route: 037
     Dates: start: 20210712, end: 202107
  3. LIORESAL [Suspect]
     Active Substance: BACLOFEN
     Dosage: 402 ?G, \DAY
     Route: 037
     Dates: start: 202107, end: 20210803
  4. LIORESAL [Suspect]
     Active Substance: BACLOFEN
     Indication: Muscle spasticity
     Dosage: 370 ?G, \DAY
     Route: 037
     Dates: start: 20210803

REACTIONS (3)
  - Drug withdrawal syndrome [Unknown]
  - Urinary retention [Unknown]
  - Therapeutic response decreased [Not Recovered/Not Resolved]

NARRATIVE: CASE EVENT DATE: 20210701
